FAERS Safety Report 9146300 (Version 1)
Quarter: 2013Q1

REPORT INFORMATION
  Report Type: Report from Study
  Country: US (occurrence: US)
  Receive Date: 20130307
  Receipt Date: 20130307
  Transmission Date: 20140127
  Serious: Yes (Hospitalization, Other)
  Sender: FDA-Public Use
  Company Number: US-ABBOTT-13P-163-1040505-00

PATIENT
  Sex: Female
  Weight: 99.88 kg

DRUGS (3)
  1. HUMIRA [Suspect]
     Indication: PSORIATIC ARTHROPATHY
     Dates: start: 20110623, end: 20120119
  2. HUMIRA [Suspect]
     Route: 058
     Dates: start: 20120424, end: 201205
  3. HUMIRA [Suspect]
     Dates: start: 20120812, end: 20120812

REACTIONS (8)
  - Pyrexia [Recovered/Resolved]
  - Cellulitis [Recovered/Resolved]
  - Staphylococcal infection [Recovered/Resolved]
  - Chest discomfort [Recovered/Resolved]
  - Urinary tract infection [Recovered/Resolved]
  - Fungal infection [Recovered/Resolved]
  - Psoriasis [Not Recovered/Not Resolved]
  - Bladder discomfort [Not Recovered/Not Resolved]
